FAERS Safety Report 6021717-1 (Version None)
Quarter: 2008Q4

REPORT INFORMATION
  Report Type: 
  Country: None (occurrence: None)
  Receive Date: 20081229
  Receipt Date: 20081218
  Transmission Date: 20090506
  Serious: Yes (Hospitalization)
  Sender: FDA-Public Use
  Company Number: CH-AVENTIS-200821823GDDC

PATIENT
  Age: 82 Year
  Sex: Female

DRUGS (8)
  1. FLAGYL [Suspect]
     Route: 048
     Dates: end: 20081122
  2. VANCOMYCIN HCL [Suspect]
     Route: 048
     Dates: end: 20081122
  3. SINTROM [Concomitant]
     Dosage: DOSE: NOT INDICATED
  4. CONCOR                             /00802602/ [Concomitant]
     Dosage: DOSE: NOT INDICATED
     Route: 048
  5. TORSEMIDE [Concomitant]
     Dosage: DOSE: NOT INDICATED
     Route: 048
  6. BONIVA [Concomitant]
     Dosage: DOSE: NOT INDICATED
  7. CALCIMAGON-D3 [Concomitant]
     Dosage: DOSE: NOT INDICATED
     Route: 048
  8. SERESTA [Concomitant]
     Route: 048

REACTIONS (1)
  - GRAND MAL CONVULSION [None]
